FAERS Safety Report 21693229 (Version 3)
Quarter: 2023Q4

REPORT INFORMATION
  Report Type: Spontaneous
  Country: US (occurrence: US)
  Receive Date: 20221207
  Receipt Date: 20231103
  Transmission Date: 20240110
  Serious: Yes (Other)
  Sender: FDA-Public Use
  Company Number: US-UNITED THERAPEUTICS-UNT-2022-029178

PATIENT
  Sex: Female

DRUGS (6)
  1. REMODULIN [Suspect]
     Active Substance: TREPROSTINIL
     Indication: Product used for unknown indication
     Dosage: 0.135 ?G/KG, CONTINUING (PUMP RATE OF 101 UL/HR)
     Route: 058
     Dates: end: 20221127
  2. REMODULIN [Suspect]
     Active Substance: TREPROSTINIL
     Dosage: UNK (PUMP RATE OF 75 UL/HR), CONTINUING
     Route: 058
     Dates: start: 20221127, end: 20221127
  3. REMODULIN [Suspect]
     Active Substance: TREPROSTINIL
     Dosage: 0.135 ?G/KG, CONTINUING (PUMP RATE OF 101 UL/HR)
     Route: 058
     Dates: start: 202211
  4. REMODULIN [Suspect]
     Active Substance: TREPROSTINIL
     Dosage: 0.131 ?G/KG (AT A PUMP RATE OF 98 UL), CONTINUING
     Route: 058
     Dates: start: 202206
  5. CANNABIS SATIVA SUBSP. INDICA TOP [Suspect]
     Active Substance: CANNABIS SATIVA SUBSP. INDICA TOP
     Indication: Infusion site pain
     Dosage: UNK
     Route: 065
  6. OXYCODONE [Suspect]
     Active Substance: OXYCODONE
     Indication: Infusion site pain
     Dosage: UNK
     Route: 065

REACTIONS (22)
  - Infusion site necrosis [Unknown]
  - Infusion site erythema [Unknown]
  - Infusion site induration [Unknown]
  - Dizziness [Unknown]
  - Pallor [Unknown]
  - Dyspnoea exertional [Unknown]
  - Nausea [Unknown]
  - Vomiting [Recovered/Resolved]
  - Headache [Not Recovered/Not Resolved]
  - Infusion site discharge [Unknown]
  - Device kink [Recovered/Resolved]
  - Device dislocation [Recovered/Resolved]
  - Device alarm issue [Recovered/Resolved]
  - Infusion site pain [Not Recovered/Not Resolved]
  - Device maintenance issue [Unknown]
  - Infusion site infection [Unknown]
  - Intentional product misuse [Unknown]
  - Therapy non-responder [Unknown]
  - Device failure [Unknown]
  - Infusion site rash [Unknown]
  - Infusion site haemorrhage [Recovered/Resolved]
  - Flushing [Unknown]

NARRATIVE: CASE EVENT DATE: 20220101
